FAERS Safety Report 23061023 (Version 3)
Quarter: 2023Q4

REPORT INFORMATION
  Report Type: Spontaneous
  Country: US (occurrence: US)
  Receive Date: 20231013
  Receipt Date: 20231213
  Transmission Date: 20240109
  Serious: Yes (Other)
  Sender: FDA-Public Use
  Company Number: US-BRISTOL-MYERS SQUIBB COMPANY-2023-144068

PATIENT
  Age: 72 Year
  Sex: Female

DRUGS (1)
  1. LENALIDOMIDE [Suspect]
     Active Substance: LENALIDOMIDE
     Indication: Type 2 diabetes mellitus
     Dosage: TAKE 1 CAPSULE BYMOUTH EVERY DAY FOR 21 DAYS ON THEN 7 DAYS OFF. REPEAT EVERY 28 DAYS
     Route: 048
     Dates: start: 20230911

REACTIONS (3)
  - Product dose omission in error [Unknown]
  - Off label use [Unknown]
  - Neuropathy peripheral [Unknown]
